FAERS Safety Report 4487838-X (Version None)
Quarter: 2004Q4

REPORT INFORMATION
  Report Type: 
  Country: None (occurrence: None)
  Receive Date: 20041027
  Receipt Date: 20041027
  Transmission Date: 20050328
  Serious: Yes (Hospitalization)
  Sender: FDA-Public Use
  Company Number: None

PATIENT
  Age: 70 Year
  Sex: Male
  Weight: 84.369 kg

DRUGS (1)
  1. ATENOLOL [Suspect]
     Dosage: 50 MG PO QD
     Route: 048

REACTIONS (4)
  - ATRIOVENTRICULAR BLOCK [None]
  - BRADYCARDIA [None]
  - DYSPNOEA [None]
  - MEDICATION ERROR [None]
